FAERS Safety Report 15406521 (Version 1)
Quarter: 2018Q3

REPORT INFORMATION
  Report Type: Spontaneous
  Country: GB (occurrence: GB)
  Receive Date: 20180920
  Receipt Date: 20180920
  Transmission Date: 20181010
  Serious: Yes (Other)
  Sender: FDA-Public Use
  Company Number: GB-009507513-1809GBR007081

PATIENT
  Age: 74 Year
  Sex: Male
  Weight: 72 kg

DRUGS (8)
  1. BISOPROLOL [Concomitant]
     Active Substance: BISOPROLOL
     Dosage: EVERY MORNING
     Dates: start: 20140519
  2. ASPIRIN. [Concomitant]
     Active Substance: ASPIRIN
     Dosage: MORNING
     Dates: start: 20180308, end: 20180815
  3. BRALTUS [Concomitant]
     Dosage: ONE CAPSULE
     Route: 055
     Dates: start: 20170516
  4. LANSOPRAZOLE. [Concomitant]
     Active Substance: LANSOPRAZOLE
     Dosage: EVERY MORNING
     Dates: start: 20140519
  5. LISINOPRIL. [Suspect]
     Active Substance: LISINOPRIL
     Dosage: 2.5 MG, UNK
     Dates: start: 20180308
  6. NITROGLYCERIN. [Concomitant]
     Active Substance: NITROGLYCERIN
     Dosage: ONE OR TWO DOSES, , PHARMACEUTICAL FORM: SUBLINGUAL SPRAY
     Route: 060
     Dates: start: 20140605
  7. DALTEPARIN SODIUM [Concomitant]
     Active Substance: DALTEPARIN SODIUM
     Dosage: 1 DF, QD
     Dates: start: 20171005
  8. ATORVASTATIN [Concomitant]
     Active Substance: ATORVASTATIN
     Dosage: EVERY NIGHT
     Dates: start: 20140519

REACTIONS (1)
  - Hypokalaemia [Recovered/Resolved]

NARRATIVE: CASE EVENT DATE: 20180308
